FAERS Safety Report 7357326-1 (Version None)
Quarter: 2011Q1

REPORT INFORMATION
  Report Type: 
  Country: None (occurrence: None)
  Receive Date: 20110307
  Receipt Date: 20091104
  Transmission Date: 20110831
  Serious: Yes (Life-Threatening, Other)
  Sender: FDA-Public Use
  Company Number: UK-2009-00361

PATIENT
  Age: 54 Year
  Sex: Female
  Weight: 65 kg

DRUGS (2)
  1. CITALOPRAM(UNKNOWN) [Concomitant]
  2. SIMVASTATIN [Suspect]
     Indication: HYPERLIPIDAEMIA
     Dosage: 10 MG (10 MG),ORAL
     Route: 048
     Dates: start: 20081101, end: 20090401

REACTIONS (1)
  - SUICIDAL IDEATION [None]
